FAERS Safety Report 6290873-2 (Version None)
Quarter: 2009Q3

REPORT INFORMATION
  Report Type: 
  Country: None (occurrence: None)
  Receive Date: 20090729
  Receipt Date: 20090729
  Transmission Date: 20100115
  Serious: Yes (Other)
  Sender: FDA-Public Use
  Company Number: None

PATIENT
  Sex: Female
  Weight: 108.8633 kg

DRUGS (10)
  1. SINGULAIR [Suspect]
     Indication: DYSPNOEA
     Dosage: 10MG, ONCE DAILY, PO
     Route: 048
     Dates: start: 20081219, end: 20090406
  2. SINGULAIR [Suspect]
     Indication: MULTIPLE ALLERGIES
     Dosage: 10MG, ONCE DAILY, PO
     Route: 048
     Dates: start: 20081219, end: 20090406
  3. ZOLOFT [Concomitant]
  4. ZYRTEC [Concomitant]
  5. METOPROLOL SUCCINATE [Concomitant]
  6. PLAVIX [Concomitant]
  7. SIMVASTATIN [Concomitant]
  8. PRILOSEC [Concomitant]
  9. ADVAIR HFA [Concomitant]
  10. SPIRIVA [Concomitant]

REACTIONS (12)
  - ABNORMAL BEHAVIOUR [None]
  - AFFECTIVE DISORDER [None]
  - AGGRESSION [None]
  - AMNESIA [None]
  - ANGER [None]
  - DEATH OF RELATIVE [None]
  - DRUG INEFFECTIVE [None]
  - EMOTIONAL DISORDER [None]
  - EYE DISORDER [None]
  - IMPATIENCE [None]
  - POOR QUALITY SLEEP [None]
  - TREMOR [None]
